FAERS Safety Report 18999287 (Version 1)
Quarter: 2021Q1

REPORT INFORMATION
  Report Type: Spontaneous
  Country: US (occurrence: US)
  Receive Date: 20210311
  Receipt Date: 20210311
  Transmission Date: 20210420
  Serious: Yes (Other)
  Sender: FDA-Public Use
  Company Number: US-TEVA-2021-US-1889161

PATIENT
  Age: 68 Year
  Sex: Female

DRUGS (16)
  1. SENNA [Concomitant]
     Active Substance: SENNA LEAF\SENNOSIDES\SENNOSIDES A AND B
  2. SOLIFENACIN [Concomitant]
     Active Substance: SOLIFENACIN
  3. VITAMIN D [Concomitant]
     Active Substance: VITAMIN D NOS
  4. LISINOPRIL. [Concomitant]
     Active Substance: LISINOPRIL
  5. MMETHENAMINE [Concomitant]
  6. SEROQUEL [Concomitant]
     Active Substance: QUETIAPINE FUMARATE
  7. ROPINIROLE. [Concomitant]
     Active Substance: ROPINIROLE
  8. MAGNESIUM [Concomitant]
     Active Substance: MAGNESIUM
  9. SERTRALINE [Concomitant]
     Active Substance: SERTRALINE HYDROCHLORIDE
  10. COPAXONE [Suspect]
     Active Substance: GLATIRAMER ACETATE
     Indication: MULTIPLE SCLEROSIS
     Route: 058
     Dates: start: 20200110
  11. BRIVIACT [Concomitant]
     Active Substance: BRIVARACETAM
  12. MODAFINIL. [Concomitant]
     Active Substance: MODAFINIL
  13. IRON [Concomitant]
     Active Substance: IRON
  14. CALCIUM WITH VITAMIN D [Concomitant]
     Active Substance: CALCIUM\VITAMIN D
  15. ATORVASTATIN [Concomitant]
     Active Substance: ATORVASTATIN
  16. VITAMIN C [Concomitant]
     Active Substance: ASCORBIC ACID

REACTIONS (3)
  - Multiple sclerosis relapse [Not Recovered/Not Resolved]
  - Movement disorder [Not Recovered/Not Resolved]
  - Fall [Not Recovered/Not Resolved]

NARRATIVE: CASE EVENT DATE: 20210210
